FAERS Safety Report 25483328 (Version 1)
Quarter: 2025Q2

REPORT INFORMATION
  Report Type: Other
  Country: CA (occurrence: CA)
  Receive Date: 20250626
  Receipt Date: 20250626
  Transmission Date: 20250717
  Serious: Yes (Death)
  Sender: APOTEX
  Company Number: CA-PGRTD-001127828

PATIENT
  Age: 56 Year
  Sex: Male

DRUGS (1)
  1. LACOSAMIDE [Suspect]
     Active Substance: LACOSAMIDE
     Indication: Epilepsy
     Dosage: 200 MILLIGRAM, BID
     Route: 048

REACTIONS (2)
  - Rash [Fatal]
  - Product substitution issue [Fatal]
